FAERS Safety Report 8895632 (Version 1)
Quarter: 2012Q4

REPORT INFORMATION
  Report Type: 
  Country: US (occurrence: US)
  Receive Date: 20121108
  Receipt Date: 20121108
  Transmission Date: 20130627
  Serious: Yes (Other)
  Sender: FDA-Public Use
  Company Number: US-ROCHE-1131271

PATIENT
  Sex: Female

DRUGS (8)
  1. RITUXAN [Suspect]
     Indication: IDIOPATHIC THROMBOCYTOPENIC PURPURA
     Route: 065
     Dates: start: 19990902
  2. RITUXAN [Suspect]
     Indication: OFF LABEL USE
  3. RITUXAN [Suspect]
     Indication: THROMBOCYTOPENIA
  4. PREDNISONE [Concomitant]
     Route: 065
  5. XANAX [Concomitant]
  6. BENADRYL [Concomitant]
  7. DECADRON [Concomitant]
  8. TYLENOL [Concomitant]

REACTIONS (11)
  - Crohn^s disease [Unknown]
  - Systemic lupus erythematosus [Unknown]
  - Abdominal discomfort [Unknown]
  - Back pain [Unknown]
  - Diarrhoea [Unknown]
  - Urticaria [Unknown]
  - Bronchitis [Recovered/Resolved]
  - Rhinitis allergic [Unknown]
  - Anxiety [Unknown]
  - Oedema peripheral [Unknown]
  - Nausea [Unknown]
